FAERS Safety Report 4509926-1 (Version None)
Quarter: 2004Q4

REPORT INFORMATION
  Report Type: 
  Country: None (occurrence: None)
  Receive Date: 20041124
  Receipt Date: 20041116
  Transmission Date: 20050328
  Serious: Yes (Other)
  Sender: FDA-Public Use
  Company Number: SK-ABBOTT-04P-260-0280945-00

PATIENT
  Sex: Female
  Weight: 60 kg

DRUGS (8)
  1. KLACID SR [Suspect]
     Indication: LARYNGITIS
     Route: 048
     Dates: start: 20040921, end: 20040924
  2. KLACID SR [Suspect]
     Indication: TRACHEITIS
  3. IMUDON [Suspect]
     Indication: LARYNGITIS
     Route: 048
     Dates: start: 20040921, end: 20040924
  4. IMUDON [Suspect]
     Indication: TRACHEITIS
  5. DEXTROMETHORPHAN HYDROBROMIDE [Concomitant]
     Indication: LARYNGITIS
     Dosage: 5.44 MG/DAY
     Route: 048
     Dates: start: 20040921, end: 20040924
  6. DEXTROMETHORPHAN HYDROBROMIDE [Concomitant]
     Indication: TRACHEITIS
  7. CODEIN [Concomitant]
     Indication: LARYNGITIS
     Dates: start: 20040921, end: 20040924
  8. CODEIN [Concomitant]
     Indication: TRACHEITIS

REACTIONS (3)
  - ANGIONEUROTIC OEDEMA [None]
  - DRUG HYPERSENSITIVITY [None]
  - URTICARIA [None]
